FAERS Safety Report 5370623-4 (Version None)
Quarter: 2007Q2

REPORT INFORMATION
  Report Type: 
  Country: None (occurrence: None)
  Receive Date: 20070618
  Receipt Date: 20060509
  Transmission Date: 20071010
  Serious: Yes (Hospitalization)
  Sender: FDA-Public Use
  Company Number: PHEH2006US04390

PATIENT
  Age: 55 Year
  Sex: Female

DRUGS (10)
  1. GLEEVEC [Suspect]
     Indication: CHRONIC MYELOID LEUKAEMIA
     Dosage: 600 MG, QD, ORAL; 600 MG, QD, ORAL; 600 MG, ORAL
     Route: 048
     Dates: start: 20010819
  2. GLEEVEC [Suspect]
     Indication: CHRONIC MYELOID LEUKAEMIA
     Dosage: 600 MG, QD, ORAL; 600 MG, QD, ORAL; 600 MG, ORAL
     Route: 048
     Dates: start: 20020101
  3. GLEEVEC [Suspect]
     Indication: CHRONIC MYELOID LEUKAEMIA
     Dosage: 600 MG, QD, ORAL; 600 MG, QD, ORAL; 600 MG, ORAL
     Route: 048
     Dates: start: 20040801
  4. MAXZIDE [Suspect]
     Indication: OEDEMA
     Dosage: 37.5/25 OR 16.7/12.5 QD, ORAL
     Route: 048
     Dates: start: 20020819, end: 20030513
  5. LANTUS [Concomitant]
  6. DIOVAN [Concomitant]
  7. HUMALOG [Concomitant]
  8. LEVOXYL [Concomitant]
  9. LEXAPRO [Concomitant]
  10. ACIPHEX [Concomitant]

REACTIONS (6)
  - BLOOD POTASSIUM DECREASED [None]
  - BLOOD SODIUM DECREASED [None]
  - DRUG INEFFECTIVE [None]
  - OEDEMA [None]
  - RASH [None]
  - SKIN EXFOLIATION [None]
